FAERS Safety Report 5638875-0 (Version None)
Quarter: 2008Q1

REPORT INFORMATION
  Report Type: 
  Country: None (occurrence: None)
  Receive Date: 20080226
  Receipt Date: 20080219
  Transmission Date: 20080703
  Serious: Yes (Hospitalization)
  Sender: FDA-Public Use
  Company Number: GB-ROCHE-548387

PATIENT
  Age: 62 Year
  Sex: Female
  Weight: 96.6 kg

DRUGS (5)
  1. ORLISTAT [Suspect]
     Indication: OBESITY
     Route: 048
     Dates: start: 20070903, end: 20080124
  2. LITHIUM CARBONATE [Concomitant]
     Route: 048
  3. LARGACTIL [Concomitant]
     Route: 048
  4. LEVOTHYROXINE SODIUM [Concomitant]
     Indication: HYPOTHYROIDISM
     Route: 048
  5. FRUSEMIDE [Concomitant]
     Route: 048

REACTIONS (1)
  - CELLULITIS [None]
